FAERS Safety Report 25113772 (Version 1)
Quarter: 2025Q1

REPORT INFORMATION
  Report Type: Spontaneous
  Country: US (occurrence: None)
  Receive Date: 20250323
  Receipt Date: 20250323
  Transmission Date: 20250409
  Serious: Yes (Other)
  Sender: FDA-CTU
  Company Number: None

PATIENT
  Age: 42 Year
  Sex: Female
  Weight: 60.75 kg

DRUGS (6)
  1. BUPROPION [Suspect]
     Active Substance: BUPROPION
     Indication: Depression
     Dates: start: 20201110
  2. CALCIUM [Concomitant]
     Active Substance: CALCIUM
  3. VITAMIN B [Concomitant]
     Active Substance: VITAMIN B
  4. INOSITOL [Concomitant]
     Active Substance: INOSITOL
  5. HERBALS [Concomitant]
     Active Substance: HERBALS
  6. 5htp [Concomitant]

REACTIONS (1)
  - Ocular discomfort [None]

NARRATIVE: CASE EVENT DATE: 20210517
